FAERS Safety Report 16145310 (Version 1)
Quarter: 2019Q2

REPORT INFORMATION
  Report Type: Spontaneous
  Country: FR (occurrence: FR)
  Receive Date: 20190402
  Receipt Date: 20190402
  Transmission Date: 20190711
  Serious: Yes (Death)
  Sender: FDA-Public Use
  Company Number: FR-AMGEN-FRASP2019048576

PATIENT
  Age: 62 Year
  Sex: Female
  Weight: 62 kg

DRUGS (1)
  1. PROLIA [Suspect]
     Active Substance: DENOSUMAB
     Indication: OSTEOPOROSIS POSTMENOPAUSAL
     Dosage: 60 MILLIGRAM, Q6MO
     Route: 058
     Dates: start: 2014, end: 201708

REACTIONS (1)
  - Colon cancer [Fatal]

NARRATIVE: CASE EVENT DATE: 20170801
